FAERS Safety Report 5682190-6 (Version None)
Quarter: 2008Q1

REPORT INFORMATION
  Report Type: 
  Country: None (occurrence: None)
  Receive Date: 20080325
  Receipt Date: 20080311
  Transmission Date: 20080703
  Serious: Yes (Disabling)
  Sender: FDA-Public Use
  Company Number: 2008AL001603

PATIENT
  Age: 65 Year
  Sex: Female

DRUGS (3)
  1. GABAPENTIN [Suspect]
     Indication: NEURALGIA
     Dosage: 300 MG BID PO
     Route: 048
     Dates: start: 20080117, end: 20080211
  2. LIDOCAINE [Concomitant]
  3. MIRTAZAPINE [Concomitant]

REACTIONS (1)
  - VISUAL DISTURBANCE [None]
